FAERS Safety Report 8410086-5 (Version None)
Quarter: 2012Q2

REPORT INFORMATION
  Report Type: 
  Country: None (occurrence: None)
  Receive Date: 20120605
  Receipt Date: 20120601
  Transmission Date: 20120825
  Serious: Yes (Disabling, Other)
  Sender: FDA-Public Use
  Company Number: US-BAYER-2012-054828

PATIENT
  Sex: Female

DRUGS (2)
  1. YAZ [Suspect]
     Dosage: UNK
     Dates: start: 20081001, end: 20090731
  2. YASMIN [Suspect]
     Dosage: UNK
     Dates: start: 20081001, end: 20090731

REACTIONS (5)
  - PAIN [None]
  - DEFORMITY [None]
  - GALLBLADDER DISORDER [None]
  - INJURY [None]
  - MENTAL DISORDER [None]
